FAERS Safety Report 5204484-0 (Version None)
Quarter: 2007Q1

REPORT INFORMATION
  Report Type: 
  Country: None (occurrence: None)
  Receive Date: 20070110
  Receipt Date: 20060411
  Transmission Date: 20070707
  Serious: Yes (Other)
  Sender: FDA-Public Use
  Company Number: US-BRISTOL-MYERS SQUIBB COMPANY-13343587

PATIENT
  Sex: Female

DRUGS (5)
  1. ABILIFY [Suspect]
  2. ZYPREXA [Suspect]
  3. LAMICTAL [Suspect]
  4. LUVOX [Suspect]
  5. MOBAN [Suspect]

REACTIONS (3)
  - INSOMNIA [None]
  - PARANOIA [None]
  - SUICIDAL IDEATION [None]
